FAERS Safety Report 8531465-1 (Version None)
Quarter: 2012Q3

REPORT INFORMATION
  Report Type: 
  Country: None (occurrence: None)
  Receive Date: 20120723
  Receipt Date: 20120717
  Transmission Date: 20120928
  Serious: No
  Sender: FDA-Public Use
  Company Number: US-PFIZER INC-2012126949

PATIENT
  Sex: Male

DRUGS (3)
  1. DILAUDID [Concomitant]
     Indication: PAIN
     Dosage: 4 MG, 3X/DAY
     Dates: start: 20100101
  2. FENTANYL [Concomitant]
     Indication: PAIN
     Dosage: 75 UG,
     Dates: start: 20100101
  3. XYNTHA [Suspect]
     Indication: FACTOR VIII DEFICIENCY
     Dosage: 3000 IU, AS NEEDED
     Route: 042
     Dates: start: 20100101

REACTIONS (1)
  - INTENTIONAL DRUG MISUSE [None]
